FAERS Safety Report 25413199 (Version 3)
Quarter: 2025Q3

REPORT INFORMATION
  Report Type: Spontaneous
  Country: JP (occurrence: JP)
  Receive Date: 20250609
  Receipt Date: 20250710
  Transmission Date: 20251021
  Serious: Yes (Life-Threatening, Hospitalization)
  Sender: PFIZER
  Company Number: JP-PFIZER INC-202500104625

PATIENT
  Age: 76 Year
  Sex: Female
  Weight: 40 kg

DRUGS (2)
  1. LORBRENA [Suspect]
     Active Substance: LORLATINIB
     Indication: Lung neoplasm malignant
     Dosage: 75 MG, 1X/DAY
     Route: 048
     Dates: start: 20240209, end: 20250418
  2. AMLODIPINE [Concomitant]
     Active Substance: AMLODIPINE BESYLATE
     Indication: Hypertension
     Dosage: 10 MG, 1X/DAY

REACTIONS (1)
  - Aplastic anaemia [Not Recovered/Not Resolved]

NARRATIVE: CASE EVENT DATE: 20250401
